FAERS Safety Report 8214653-3 (Version None)
Quarter: 2012Q1

REPORT INFORMATION
  Report Type: 
  Country: None (occurrence: None)
  Receive Date: 20120229
  Receipt Date: 20111123
  Transmission Date: 20120608
  Serious: Yes (Other)
  Sender: FDA-Public Use
  Company Number: US-JNJFOC-20111111860

PATIENT
  Age: 38 Year
  Sex: Female

DRUGS (3)
  1. IBUPROFEN [Suspect]
     Indication: ARTHRALGIA
     Dosage: UNKNOWN
  2. CELEBREX [Suspect]
     Indication: ARTHRALGIA
     Dosage: UNKNOWN
  3. METHOTREXATE [Concomitant]

REACTIONS (3)
  - SYSTEMIC LUPUS ERYTHEMATOSUS [None]
  - MALAISE [None]
  - DRUG INEFFECTIVE [None]
